FAERS Safety Report 24461868 (Version 1)
Quarter: 2024Q4

REPORT INFORMATION
  Report Type: Report from Study
  Country: SE (occurrence: SE)
  Receive Date: 20241018
  Receipt Date: 20241018
  Transmission Date: 20250115
  Serious: No
  Sender: ROCHE
  Company Number: SE-ROCHE-3546987

PATIENT

DRUGS (6)
  1. RITUXIMAB [Interacting]
     Active Substance: RITUXIMAB
     Indication: Rheumatic disorder
     Route: 042
  2. TOCILIZUMAB [Interacting]
     Active Substance: TOCILIZUMAB
     Indication: Rheumatic disorder
     Route: 065
  3. SARILUMAB [Interacting]
     Active Substance: SARILUMAB
     Indication: Rheumatic disorder
     Route: 065
  4. AZD-1222 [Interacting]
     Active Substance: AZD-1222
     Indication: COVID-19 prophylaxis
     Route: 065
  5. TOZINAMERAN [Interacting]
     Active Substance: TOZINAMERAN
     Indication: COVID-19 prophylaxis
     Route: 065
  6. ELASOMERAN [Interacting]
     Active Substance: ELASOMERAN
     Indication: COVID-19 prophylaxis
     Route: 065

REACTIONS (3)
  - Vaccination failure [Unknown]
  - Vaccine interaction [Unknown]
  - COVID-19 [Unknown]
